FAERS Safety Report 6119553-0 (Version None)
Quarter: 2009Q1

REPORT INFORMATION
  Report Type: 
  Country: None (occurrence: None)
  Receive Date: 20090316
  Receipt Date: 20090309
  Transmission Date: 20090719
  Serious: Yes (Other)
  Sender: FDA-Public Use
  Company Number: B0558569A

PATIENT
  Age: 12 Month
  Sex: Female
  Weight: 9.2 kg

DRUGS (5)
  1. PRIORIX [Suspect]
     Indication: PROPHYLAXIS
     Route: 030
     Dates: start: 20090126, end: 20090126
  2. AUGMENTIN '125' [Suspect]
     Indication: OTITIS MEDIA ACUTE
     Dosage: 80MGK PER DAY
     Route: 048
     Dates: start: 20090130, end: 20090208
  3. ULTRALEVURE [Concomitant]
     Indication: OTITIS MEDIA ACUTE
     Route: 048
     Dates: start: 20090101
  4. RHINOTROPHYL [Concomitant]
     Indication: OTITIS MEDIA ACUTE
     Route: 065
     Dates: start: 20090101
  5. DOLIPRANE [Concomitant]
     Indication: VACCINATION COMPLICATION
     Dosage: 15MGK UNKNOWN
     Route: 048
     Dates: start: 20090206

REACTIONS (5)
  - ECCHYMOSIS [None]
  - LEUKOCYTOCLASTIC VASCULITIS [None]
  - OEDEMA PERIPHERAL [None]
  - PYREXIA [None]
  - RASH MORBILLIFORM [None]
